FAERS Safety Report 8569656-6 (Version None)
Quarter: 2012Q3

REPORT INFORMATION
  Report Type: 
  Country: None (occurrence: None)
  Receive Date: 20120803
  Receipt Date: 20120618
  Transmission Date: 20120928
  Serious: No
  Sender: FDA-Public Use
  Company Number: US-ABBOTT-12P-163-0947847-00

PATIENT
  Sex: Female
  Weight: 89.892 kg

DRUGS (9)
  1. NIACIN [Concomitant]
     Indication: PRODUCT USED FOR UNKNOWN INDICATION
  2. SYNTHROID [Concomitant]
     Indication: HYPOTHYROIDISM
  3. NIASPAN [Suspect]
     Indication: HIGH DENSITY LIPOPROTEIN DECREASED
     Route: 048
     Dates: start: 20040719
  4. M.V.I. [Concomitant]
     Indication: PRODUCT USED FOR UNKNOWN INDICATION
  5. FISH OIL [Concomitant]
     Indication: PRODUCT USED FOR UNKNOWN INDICATION
  6. ESTROVEN [Concomitant]
     Indication: HYSTERECTOMY
     Dosage: OTC, 2 IN 1 DAYS
  7. NORVASC [Concomitant]
     Indication: BLOOD PRESSURE INCREASED
  8. LOPRESSOR [Concomitant]
     Indication: CARDIAC DISORDER
  9. COQ10 [Concomitant]
     Indication: PRODUCT USED FOR UNKNOWN INDICATION

REACTIONS (2)
  - HYPOTHYROIDISM [None]
  - FLUSHING [None]
